FAERS Safety Report 11181232 (Version 2)
Quarter: 2016Q2

REPORT INFORMATION
  Report Type: Spontaneous
  Country: US (occurrence: US)
  Receive Date: 20150611
  Receipt Date: 20160412
  Transmission Date: 20160815
  Serious: No
  Sender: FDA-Public Use
  Company Number: US-BAYER-2015-296655

PATIENT
  Age: 26 Year
  Sex: Female

DRUGS (1)
  1. MIRENA [Suspect]
     Active Substance: LEVONORGESTREL
     Indication: CONTRACEPTION
     Dosage: 20 MCG/24HR, CONT
     Route: 015
     Dates: start: 201503

REACTIONS (5)
  - Ovarian cyst [None]
  - Ear pain [Recovering/Resolving]
  - Ear infection [Recovering/Resolving]
  - Otorrhoea [Recovering/Resolving]
  - Bacterial vaginosis [None]

NARRATIVE: CASE EVENT DATE: 201505
